FAERS Safety Report 11613689 (Version 3)
Quarter: 2016Q3

REPORT INFORMATION
  Report Type: Spontaneous
  Country: US (occurrence: US)
  Receive Date: 20151008
  Receipt Date: 20160802
  Transmission Date: 20161109
  Serious: No
  Sender: FDA-Public Use
  Company Number: US-BAYER-2015-434036

PATIENT
  Sex: Male
  Weight: 82.54 kg

DRUGS (9)
  1. CIPRO [Suspect]
     Active Substance: CIPROFLOXACIN HYDROCHLORIDE
     Indication: APPENDICITIS
     Dosage: 400 MG, UNK
     Dates: start: 20111022, end: 20111025
  2. ELAVIL [Concomitant]
     Active Substance: AMITRIPTYLINE HYDROCHLORIDE
     Indication: ARTHRALGIA
  3. VITAMIN B12 [Concomitant]
     Active Substance: CYANOCOBALAMIN
     Dosage: UNK
     Dates: start: 2012
  4. TRAMADOL. [Concomitant]
     Active Substance: TRAMADOL
     Indication: PAIN
  5. AVELOX [Suspect]
     Active Substance: MOXIFLOXACIN HYDROCHLORIDE
     Indication: APPENDICITIS
     Dosage: UNK
     Dates: start: 20111025, end: 201111
  6. TORADOL [Concomitant]
     Active Substance: KETOROLAC TROMETHAMINE
     Indication: PAIN
     Dosage: UNK
     Dates: start: 201110
  7. DOXYCYCLINE. [Concomitant]
     Active Substance: DOXYCYCLINE
     Indication: MICTURITION DISORDER
  8. LORTAB [Concomitant]
     Active Substance: ACETAMINOPHEN\HYDROCODONE BITARTRATE
     Indication: BACK PAIN
  9. MEDROL [Concomitant]
     Active Substance: METHYLPREDNISOLONE
     Indication: PAIN

REACTIONS (10)
  - Emotional distress [None]
  - Musculoskeletal injury [None]
  - Mental disorder [None]
  - Injury [None]
  - Skin injury [None]
  - Musculoskeletal pain [None]
  - Pain [None]
  - Cardiovascular disorder [None]
  - Neuropathy peripheral [None]
  - Nervous system disorder [None]
